FAERS Safety Report 5074237-5 (Version None)
Quarter: 2006Q3

REPORT INFORMATION
  Report Type: 
  Country: None (occurrence: None)
  Receive Date: 20060803
  Receipt Date: 20060725
  Transmission Date: 20061208
  Serious: Yes (Other)
  Sender: FDA-Public Use
  Company Number: 2006-07-1612

PATIENT
  Age: 55 Year
  Sex: Male

DRUGS (5)
  1. PEG-INTRON [Suspect]
     Indication: HEPATITIS C
     Dosage: 1.1 MCG/KG QW
     Dates: start: 20021001, end: 20030901
  2. RIBAVIRIN [Suspect]
     Indication: HEPATITIS C
     Dosage: 6.4 MG/KG QD
     Dates: start: 20021001, end: 20030901
  3. CYCLOSPORINE [Concomitant]
  4. AZATHIOPRINE SODIUM [Concomitant]
  5. STEROIDS [Concomitant]

REACTIONS (6)
  - ASCITES [None]
  - AUTOIMMUNE HEPATITIS [None]
  - CHOLANGITIS [None]
  - PERICARDIAL EFFUSION [None]
  - PLEURAL EFFUSION [None]
  - SYSTEMIC LUPUS ERYTHEMATOSUS [None]
